FAERS Safety Report 8035962-7 (Version None)
Quarter: 2012Q1

REPORT INFORMATION
  Report Type: 
  Country: None (occurrence: None)
  Receive Date: 20120106
  Receipt Date: 20120104
  Transmission Date: 20120608
  Serious: Yes (Hospitalization)
  Sender: FDA-Public Use
  Company Number: SP05349

PATIENT
  Age: 27 Year
  Sex: Female
  Weight: 51.2 kg

DRUGS (6)
  1. INSULIN [Concomitant]
  2. XIFAXAN [Suspect]
     Indication: CLOSTRIDIUM TEST POSITIVE
     Dosage: ORAL
     Route: 048
     Dates: start: 20110614, end: 20110620
  3. KEPPRA [Suspect]
     Dates: start: 20110607, end: 20110620
  4. SOLIRIS [Suspect]
     Indication: HAEMOLYTIC URAEMIC SYNDROME
     Dosage: (900 MG), INTRAVENOUS
     Route: 042
     Dates: start: 20110601, end: 20110903
  5. RAMIPRIL [Suspect]
     Dates: start: 20110615, end: 20110701
  6. AZITHROMYCIN [Suspect]
     Dates: start: 20110617, end: 20110701

REACTIONS (3)
  - INSULIN C-PEPTIDE DECREASED [None]
  - COLITIS ISCHAEMIC [None]
  - PANCREATITIS [None]
